FAERS Safety Report 19981141 (Version 1)
Quarter: 2021Q4

REPORT INFORMATION
  Report Type: Report from Study
  Country: US (occurrence: US)
  Receive Date: 20211022
  Receipt Date: 20211022
  Transmission Date: 20220303
  Serious: Yes (Death, Life-Threatening, Hospitalization, Other)
  Sender: FDA-Public Use
  Company Number: US-BRISTOL-MYERS SQUIBB COMPANY-BMS-2021-106795

PATIENT
  Age: 78 Year
  Sex: Male
  Weight: 77.4 kg

DRUGS (3)
  1. NIVOLUMAB [Suspect]
     Active Substance: NIVOLUMAB
     Indication: Adenocarcinoma gastric
     Dosage: 480 MILLIGRAM ON DAY 1
     Route: 042
     Dates: start: 20210816, end: 20210816
  2. TACROLIMUS [Suspect]
     Active Substance: TACROLIMUS
     Indication: Adenocarcinoma gastric
     Dosage: 2 MILLIGRAM, BID
     Route: 048
     Dates: start: 20210801, end: 20210928
  3. PREDNISONE [Suspect]
     Active Substance: PREDNISONE
     Indication: Adenocarcinoma gastric
     Dosage: 5 MILLIGRAM, BID
     Route: 048
     Dates: start: 20210807, end: 20210928

REACTIONS (4)
  - Acute respiratory failure [Fatal]
  - Small intestinal obstruction [Unknown]
  - Constipation [Unknown]
  - COVID-19 [Unknown]

NARRATIVE: CASE EVENT DATE: 20210806
